FAERS Safety Report 5872339-4 (Version None)
Quarter: 2008Q3

REPORT INFORMATION
  Report Type: 
  Country: None (occurrence: None)
  Receive Date: 20080902
  Receipt Date: 20080825
  Transmission Date: 20090109
  Serious: Yes (Hospitalization)
  Sender: FDA-Public Use
  Company Number: 2008JP003372

PATIENT
  Age: 56 Year
  Sex: Male
  Weight: 64.5 kg

DRUGS (7)
  1. PROGRAF [Suspect]
     Indication: RENAL TRANSPLANT
     Dosage: 1 MG, BID; ORAL
     Route: 048
     Dates: start: 20021101
  2. CELLCEPT [Suspect]
     Indication: RENAL TRANSPLANT
     Dosage: 250 MG, BID, ORAL
     Route: 048
     Dates: start: 20021101
  3. MEDROL [Suspect]
     Indication: RENAL TRANSPLANT
     Dosage: 4 MG, UID/QD; ORAL
     Route: 048
     Dates: start: 20021101
  4. MUCOSTA (REBAMIPIDE) TABLET [Concomitant]
  5. LIPITOR [Concomitant]
  6. ZEFIX (LAMIVUDINE) TABLET [Concomitant]
  7. HEPSERA [Concomitant]

REACTIONS (2)
  - PNEUMONIA CRYPTOCOCCAL [None]
  - RENAL CANCER [None]
